FAERS Safety Report 4976490-2 (Version None)
Quarter: 2006Q2

REPORT INFORMATION
  Report Type: 
  Country: None (occurrence: None)
  Receive Date: 20060412
  Receipt Date: 20060330
  Transmission Date: 20061013
  Serious: Yes (Other)
  Sender: FDA-Public Use
  Company Number: 2006US-01902

PATIENT
  Age: 55 Year
  Sex: Male

DRUGS (1)
  1. CIPROFLOXACIN [Suspect]
     Dosage: 500 MG, BID, ORAL
     Route: 048
     Dates: start: 20060211, end: 20060213

REACTIONS (9)
  - ABDOMINAL PAIN UPPER [None]
  - ANGIONEUROTIC OEDEMA [None]
  - CHEMICAL INJURY [None]
  - CHEST PAIN [None]
  - CHROMATURIA [None]
  - DIARRHOEA [None]
  - DIZZINESS [None]
  - HEPATITIS ACUTE [None]
  - STOMACH DISCOMFORT [None]
